FAERS Safety Report 17464394 (Version 7)
Quarter: 2020Q2

REPORT INFORMATION
  Report Type: Report from Study
  Country: DE (occurrence: DE)
  Receive Date: 20200226
  Receipt Date: 20200625
  Transmission Date: 20200713
  Serious: Yes (Hospitalization)
  Sender: FDA-Public Use
  Company Number: DE-BEH-2020113677

PATIENT
  Age: 77 Year
  Sex: Female
  Weight: 64 kg

DRUGS (22)
  1. PRIVIGEN [Suspect]
     Active Substance: HUMAN IMMUNOGLOBULIN G
     Dosage: 60 GRAM, TOT
     Route: 042
     Dates: start: 20200128, end: 20200128
  2. EXJADE [Concomitant]
     Active Substance: DEFERASIROX
     Dosage: 1080 MILLIGRAM, QD
     Dates: start: 20200305
  3. PRIVIGEN [Suspect]
     Active Substance: HUMAN IMMUNOGLOBULIN G
     Dosage: 60 GRAM, TOT
     Route: 042
     Dates: start: 20200312, end: 20200312
  4. CITALOPRAM [Concomitant]
     Active Substance: CITALOPRAM HYDROBROMIDE
     Dosage: 20 MILLIGRAM, QD
  5. MIRTAZAPINE. [Concomitant]
     Active Substance: MIRTAZAPINE
     Dosage: 15 UNK
  6. TROMCARDIN [Concomitant]
     Active Substance: MAGNESIUM ASPARTATE\POTASSIUM ASPARTATE
     Dosage: UNK, BID
     Dates: start: 20200305
  7. PRIVIGEN [Suspect]
     Active Substance: HUMAN IMMUNOGLOBULIN G
     Indication: CHRONIC INFLAMMATORY DEMYELINATING POLYRADICULONEUROPATHY
     Dosage: 60 GRAM, Q3W (EVERY 3-4 WEEKS)
     Route: 042
     Dates: start: 20160811
  8. PRIVIGEN [Suspect]
     Active Substance: HUMAN IMMUNOGLOBULIN G
     Dosage: 60 GRAM, TOT
     Route: 042
     Dates: start: 20191202, end: 20191202
  9. MIRTAZAPINE. [Concomitant]
     Active Substance: MIRTAZAPINE
     Dosage: 7.5 MILLIGRAM, QD
     Dates: start: 20200305
  10. PRIVIGEN [Suspect]
     Active Substance: HUMAN IMMUNOGLOBULIN G
     Dosage: 60 GRAM, TOT
     Route: 042
     Dates: start: 20200107, end: 20200107
  11. VIGANTOLETTEN [Concomitant]
     Active Substance: CHOLECALCIFEROL
     Dosage: 1000 INTERNATIONAL UNIT, QD
     Dates: start: 20200305
  12. OLMETEC PLUS [Concomitant]
     Active Substance: HYDROCHLOROTHIAZIDE\OLMESARTAN MEDOXOMIL
     Dosage: 12.5 MILLIGRAM, QD
  13. PRIVIGEN [Suspect]
     Active Substance: HUMAN IMMUNOGLOBULIN G
     Dosage: 60 GRAM, TOT
     Route: 042
     Dates: start: 20200220, end: 20200220
  14. VITAMINS NOS [Concomitant]
     Active Substance: VITAMINS
  15. CITALOPRAM [Concomitant]
     Active Substance: CITALOPRAM HYDROBROMIDE
     Dosage: UNK
  16. SELENASE [SELENIDE SODIUM] [Concomitant]
     Dosage: UNK, QD, CURRENTLY PAUSED
     Dates: start: 20200323
  17. PRIVIGEN [Suspect]
     Active Substance: HUMAN IMMUNOGLOBULIN G
     Dosage: 60 GRAM, TOT
     Route: 042
     Dates: start: 20191111, end: 20191111
  18. AMLODIPINE [Concomitant]
     Active Substance: AMLODIPINE BESYLATE
     Dosage: 5 MILLIGRAM, QD
     Dates: start: 20200305
  19. VOTUM PLUS [Concomitant]
     Active Substance: HYDROCHLOROTHIAZIDE\OLMESARTAN MEDOXOMIL
     Dosage: 12.5 MILLIGRAM, QD
  20. MAGNESIUM VERLA [MAGNESIUM ASPARTATE] [Concomitant]
     Dosage: UNK, QOD
  21. ESCITALOPRAM [Concomitant]
     Active Substance: ESCITALOPRAM OXALATE
     Dosage: 10 MILLIGRAM, BID
     Dates: start: 20200311
  22. MINERALS [Concomitant]
     Active Substance: MINERALS

REACTIONS (8)
  - Adjustment disorder with depressed mood [Recovering/Resolving]
  - Gait disturbance [Recovering/Resolving]
  - Groin pain [Recovering/Resolving]
  - Insomnia [Recovering/Resolving]
  - Compulsions [Recovering/Resolving]
  - Psychotic symptom [Recovering/Resolving]
  - Back pain [Recovering/Resolving]
  - Depressed mood [Recovering/Resolving]

NARRATIVE: CASE EVENT DATE: 20200210
